FAERS Safety Report 8169679-5 (Version None)
Quarter: 2012Q1

REPORT INFORMATION
  Report Type: 
  Country: None (occurrence: None)
  Receive Date: 20120228
  Receipt Date: 20120222
  Transmission Date: 20120608
  Serious: No
  Sender: FDA-Public Use
  Company Number: US-PFIZER INC-2012018752

PATIENT
  Sex: Female
  Weight: 70.295 kg

DRUGS (5)
  1. NICOTINIC ACID AMIDE [Concomitant]
     Dosage: 400 MG, 1X/DAY
  2. EFFEXOR XR [Suspect]
     Indication: DEPRESSION
     Dosage: 150 MG, 1X/DAY
     Route: 048
     Dates: start: 20070101, end: 20120120
  3. LEVOTHYROXINE [Concomitant]
     Dosage: 88 UG
  4. SINGULAIR [Concomitant]
     Dosage: UNK
  5. ALLEGRA-D 12 HOUR [Concomitant]
     Dosage: UNK

REACTIONS (1)
  - FEELING ABNORMAL [None]
